FAERS Safety Report 23429176 (Version 4)
Quarter: 2025Q1

REPORT INFORMATION
  Report Type: Spontaneous
  Country: US (occurrence: US)
  Receive Date: 20240122
  Receipt Date: 20250204
  Transmission Date: 20250409
  Serious: Yes (Other)
  Sender: SANOFI AVENTIS
  Company Number: US-SA-SAC20240116000473

PATIENT
  Age: 55 Year
  Sex: Male

DRUGS (2)
  1. DUPIXENT [Suspect]
     Active Substance: DUPILUMAB
     Indication: Asthma
     Route: 058
  2. DUPIXENT [Suspect]
     Active Substance: DUPILUMAB
     Dosage: 300 MG, QOW
     Route: 058

REACTIONS (11)
  - Pulmonary congestion [Unknown]
  - Dyspnoea [Unknown]
  - Product dose omission issue [Unknown]
  - Obstructive airways disorder [Unknown]
  - Chest pain [Unknown]
  - Chest discomfort [Unknown]
  - Tachycardia [Unknown]
  - Neck pain [Unknown]
  - Pruritus [Unknown]
  - Skin exfoliation [Unknown]
  - Conjunctivitis [Unknown]
